FAERS Safety Report 5358862-X (Version None)
Quarter: 2007Q2

REPORT INFORMATION
  Report Type: 
  Country: None (occurrence: None)
  Receive Date: 20070615
  Receipt Date: 20070605
  Transmission Date: 20071010
  Serious: Yes (Death)
  Sender: FDA-Public Use
  Company Number: JP-ROCHE-491880

PATIENT
  Age: 68 Year
  Sex: Female

DRUGS (3)
  1. TAMIFLU [Suspect]
     Route: 048
     Dates: start: 20070327, end: 20070327
  2. PREDNISOLONE [Concomitant]
     Dosage: 40 MG DAILY GIVEN FROM 24 FEB 2007 T0 26 FEB 2007, 30 MG DAILY FROM 27 FEB 2007 TO 8 MAR 2007, 25 M+
     Route: 048
     Dates: start: 20070224
  3. IMMUNE GLOBULIN INTRAVENOUS (HUMAN) [Concomitant]
     Dates: start: 20070327

REACTIONS (2)
  - PNEUMONIA [None]
  - WHITE BLOOD CELL COUNT DECREASED [None]
